FAERS Safety Report 9576267 (Version 1)
Quarter: 2013Q4

REPORT INFORMATION
  Report Type: Spontaneous
  Country: US (occurrence: US)
  Receive Date: 20131001
  Receipt Date: 20131001
  Transmission Date: 20140711
  Serious: No
  Sender: FDA-Public Use
  Company Number: US-AMGEN-USASP2013002219

PATIENT
  Sex: Male
  Weight: 88.44 kg

DRUGS (10)
  1. ENBREL [Suspect]
     Indication: PSORIATIC ARTHROPATHY
     Dosage: 50 MG, QWK
     Route: 058
  2. ENBREL [Suspect]
     Indication: PSORIASIS
  3. CIALIS [Concomitant]
     Dosage: 2.5 MG, UNK
  4. CENTRUM                            /02217401/ [Concomitant]
     Dosage: UNK
  5. AMLODIPINE [Concomitant]
     Dosage: 5 MG, UNK
  6. SIMVASTATIN [Concomitant]
     Dosage: 20 MG, UNK
  7. VITAMIN B1 [Concomitant]
     Dosage: 100 MG, UNK
  8. CINNAMON                           /01647501/ [Concomitant]
     Dosage: 500 MG, UNK
  9. VITAMIN D                          /00107901/ [Concomitant]
     Dosage: 1000 UNIT, UNK
  10. GARLIC                             /01570501/ [Concomitant]
     Dosage: 1500 UNK, UNK

REACTIONS (1)
  - Infection [Unknown]
